FAERS Safety Report 15060926 (Version 1)
Quarter: 2018Q2

REPORT INFORMATION
  Report Type: Spontaneous
  Country: US (occurrence: US)
  Receive Date: 20180625
  Receipt Date: 20180625
  Transmission Date: 20180711
  Serious: No
  Sender: FDA-Public Use
  Company Number: US-ROCHE-2023940

PATIENT
  Age: 41 Year
  Sex: Female

DRUGS (3)
  1. CLONAZEPAM. [Suspect]
     Active Substance: CLONAZEPAM
     Indication: PRODUCT USED FOR UNKNOWN INDICATION
     Route: 065
  2. DEPAKOTE [Concomitant]
     Active Substance: DIVALPROEX SODIUM
  3. VIMPAT [Concomitant]
     Active Substance: LACOSAMIDE

REACTIONS (5)
  - Blindness transient [Unknown]
  - Vomiting [Unknown]
  - Disturbance in attention [Unknown]
  - Headache [Unknown]
  - Vision blurred [Unknown]
